FAERS Safety Report 8318244-5 (Version None)
Quarter: 2012Q2

REPORT INFORMATION
  Report Type: 
  Country: None (occurrence: None)
  Receive Date: 20120427
  Receipt Date: 20120418
  Transmission Date: 20120825
  Serious: No
  Sender: FDA-Public Use
  Company Number: AU-ABBOTT-12P-008-0926748-02

PATIENT
  Sex: Female
  Weight: 43 kg

DRUGS (22)
  1. PREDNISONE [Concomitant]
     Dates: start: 20100422, end: 20100428
  2. ACTONEL [Concomitant]
     Indication: OSTEOPOROSIS PROPHYLAXIS
  3. HUMIRA [Suspect]
     Indication: CROHN'S DISEASE
     Dosage: 160 MG (BASELINE) / 80 MG (WEEK 2)
     Route: 058
     Dates: start: 20090605, end: 20100318
  4. PREDNISONE [Concomitant]
     Indication: CROHN'S DISEASE
     Dates: start: 20100304, end: 20100310
  5. PREDNISONE [Concomitant]
     Dates: start: 20100311, end: 20100317
  6. CALCIUM CARBONATE [Concomitant]
     Indication: OSTEOPOROSIS PROPHYLAXIS
  7. VITAMINORUM [Concomitant]
     Indication: VITAMIN SUPPLEMENTATION
     Dates: start: 20100223
  8. PREDNISONE [Concomitant]
     Dates: start: 20100318, end: 20100331
  9. PREDNISONE [Concomitant]
     Dates: start: 20100506, end: 20100512
  10. INFLIXIMAB [Concomitant]
     Indication: CROHN'S DISEASE
     Dates: start: 20100429, end: 20101021
  11. GASTRO-STOP [Concomitant]
     Indication: CROHN'S DISEASE
     Dates: start: 20090922
  12. PREDNISONE [Concomitant]
     Dates: start: 20100429, end: 20100505
  13. ACTONEL [Concomitant]
     Indication: OSTEOPOROSIS
     Dates: start: 20100304
  14. OSTELIN VITAMIN D [Concomitant]
     Indication: OSTEOPOROSIS
     Dates: start: 20100303
  15. MERCAPTOPURINE [Concomitant]
     Indication: CROHN'S DISEASE
     Dates: start: 20050101, end: 20101201
  16. ZINCAPS [Concomitant]
     Indication: MINERAL SUPPLEMENTATION
     Dates: start: 20100223
  17. CALCIUM CARBONATE [Concomitant]
     Indication: OSTEOPOROSIS
     Dates: start: 20100303
  18. OMEPRAZOLE [Concomitant]
     Indication: PROPHYLAXIS AGAINST GASTROINTESTINAL ULCER
     Dates: start: 20100303
  19. PREDNISONE [Concomitant]
     Dates: start: 20100401, end: 20100407
  20. PREDNISONE [Concomitant]
     Dates: start: 20100408, end: 20100414
  21. PREDNISONE [Concomitant]
     Dates: start: 20100415, end: 20100421
  22. OSTELIN VITAMIN D [Concomitant]
     Indication: OSTEOPOROSIS PROPHYLAXIS

REACTIONS (1)
  - SQUAMOUS CELL CARCINOMA OF SKIN [None]
